FAERS Safety Report 4899544-8 (Version None)
Quarter: 2006Q1

REPORT INFORMATION
  Report Type: 
  Country: None (occurrence: None)
  Receive Date: 20060118
  Receipt Date: 20050520
  Transmission Date: 20060701
  Serious: No
  Sender: FDA-Public Use
  Company Number: 2005000963

PATIENT
  Age: 73 Year
  Sex: Male
  Weight: 82.1011 kg

DRUGS (9)
  1. TARCEVA [Suspect]
     Indication: NON-SMALL CELL LUNG CANCER
     Dosage: 150 MG (QD), ORAL
     Route: 048
     Dates: start: 20050301
  2. MS CONTIN [Concomitant]
  3. MEGACE [Concomitant]
  4. ALIMTA [Concomitant]
  5. SINEMET [Concomitant]
  6. LANOXIN [Concomitant]
  7. LASIX [Concomitant]
  8. COREG [Concomitant]
  9. VENTOLIN [Concomitant]

REACTIONS (3)
  - RASH [None]
  - TARDIVE DYSKINESIA [None]
  - TREMOR [None]
